FAERS Safety Report 4925308-2 (Version None)
Quarter: 2006Q1

REPORT INFORMATION
  Report Type: 
  Country: None (occurrence: None)
  Receive Date: 20060228
  Receipt Date: 20060216
  Transmission Date: 20060701
  Serious: Yes (Other)
  Sender: FDA-Public Use
  Company Number: IT-GLAXOSMITHKLINE-B0413455A

PATIENT
  Age: 35 Year
  Sex: Female

DRUGS (1)
  1. MALARONE [Suspect]
     Indication: PROPHYLAXIS
     Dosage: 350MG PER DAY
     Route: 048
     Dates: start: 20051223, end: 20051225

REACTIONS (2)
  - ANGIONEUROTIC OEDEMA [None]
  - TONGUE OEDEMA [None]
